FAERS Safety Report 20717486 (Version 1)
Quarter: 2022Q2

REPORT INFORMATION
  Report Type: Spontaneous
  Country: NL (occurrence: NL)
  Receive Date: 20220417
  Receipt Date: 20220417
  Transmission Date: 20220721
  Serious: Yes (Other)
  Sender: FDA-Public Use
  Company Number: None

PATIENT
  Age: 57 Year
  Sex: Female
  Weight: 52 kg

DRUGS (3)
  1. HALOPERIDOL [Suspect]
     Active Substance: HALOPERIDOL
     Indication: Huntington^s disease
     Dosage: 2D1, UNIT DOSE: 5 MG, STRENGTH: 5 MG,  BRAND NAME NOT SPECIFIED, FREQUENCY TIME 12 HR, , DURATION 5
     Dates: start: 2017, end: 20220318
  2. ACETAMINOPHEN [Concomitant]
     Active Substance: ACETAMINOPHEN
     Dosage: 500 MG (MILLIGRAM), BRAND NAME NOT SPECIFIED, THERAPY START DATE AND END DATE : ASKU
  3. CITALOPRAM [Concomitant]
     Active Substance: CITALOPRAM HYDROBROMIDE
     Dosage: 20 MG (MILLIGRAM), BRAND NAME NOT SPECIFIED, THERAPY START DATE AND END DATE : ASKU

REACTIONS (1)
  - Mastitis [Recovered/Resolved]

NARRATIVE: CASE EVENT DATE: 20210104
